FAERS Safety Report 6157747-9 (Version None)
Quarter: 2009Q2

REPORT INFORMATION
  Report Type: 
  Country: None (occurrence: None)
  Receive Date: 20090416
  Receipt Date: 20090401
  Transmission Date: 20091009
  Serious: Yes (Other)
  Sender: FDA-Public Use
  Company Number: ES-MERCK-0904ESP00021

PATIENT
  Age: 68 Year
  Sex: Male

DRUGS (7)
  1. INVANZ [Suspect]
     Indication: KLEBSIELLA INFECTION
     Route: 065
  2. PRIMAXIN [Suspect]
     Route: 065
     Dates: start: 20070819
  3. CANCIDAS [Concomitant]
     Route: 042
     Dates: start: 20070828, end: 20070902
  4. CANCIDAS [Concomitant]
     Route: 042
     Dates: start: 20070828, end: 20070828
  5. AMIKACIN [Concomitant]
     Indication: EVIDENCE BASED TREATMENT
     Route: 065
  6. LINEZOLID [Concomitant]
     Route: 065
  7. PIPERACILLIN SODIUM AND TAZOBACTAM SODIUM [Concomitant]
     Indication: EVIDENCE BASED TREATMENT
     Route: 065

REACTIONS (5)
  - ANAEMIA [None]
  - GASTROINTESTINAL FISTULA [None]
  - HYPOTENSION [None]
  - SYSTEMIC INFLAMMATORY RESPONSE SYNDROME [None]
  - TACHYCARDIA [None]
